FAERS Safety Report 15426479 (Version 1)
Quarter: 2018Q3

REPORT INFORMATION
  Report Type: Spontaneous
  Country: US (occurrence: US)
  Receive Date: 20180925
  Receipt Date: 20180925
  Transmission Date: 20181010
  Serious: Yes (Hospitalization)
  Sender: FDA-Public Use
  Company Number: US-PFIZER INC-2018382875

PATIENT
  Age: 74 Year
  Sex: Male
  Weight: 124.7 kg

DRUGS (1)
  1. MERREM [Suspect]
     Active Substance: MEROPENEM
     Indication: OSTEOMYELITIS
     Dosage: UNK, 2X/DAY (1 GRAM/100ML SBMB)
     Route: 042
     Dates: start: 20180824

REACTIONS (8)
  - Pruritus [Unknown]
  - Oral pain [Not Recovered/Not Resolved]
  - Weight decreased [Recovering/Resolving]
  - Blood potassium increased [Not Recovered/Not Resolved]
  - Rash [Not Recovered/Not Resolved]
  - White blood cell count abnormal [Unknown]
  - Decreased appetite [Unknown]
  - Candida infection [Not Recovered/Not Resolved]

NARRATIVE: CASE EVENT DATE: 201809
